FAERS Safety Report 8160708-1 (Version None)
Quarter: 2012Q1

REPORT INFORMATION
  Report Type: 
  Country: None (occurrence: None)
  Receive Date: 20120223
  Receipt Date: 20120213
  Transmission Date: 20120608
  Serious: Yes (Other)
  Sender: FDA-Public Use
  Company Number: PHHY2012NL012481

PATIENT
  Sex: Female

DRUGS (8)
  1. ZOMETA [Suspect]
     Indication: BREAST CANCER METASTATIC
     Dosage: 4 MG/ 100 ML PER 28 DAYS
     Dates: start: 20090824
  2. ZOMETA [Suspect]
     Dosage: 4 MG/ 100 ML PER 28 DAYS
     Dates: start: 20120116
  3. TAXOL [Concomitant]
     Dosage: 1 DF, QW
  4. AMOXICILLIN [Concomitant]
     Dosage: 500 MG, TID
  5. MELOXICAM [Concomitant]
     Dosage: 15 MG, QD
  6. CALCIUM [Concomitant]
     Dosage: 400 MG, QD
  7. ZOMETA [Suspect]
     Dosage: 4 MG/ 100 ML PER 28 DAYS
     Dates: start: 20120213
  8. MAGNESIUM [Concomitant]
     Dosage: 200 MG, QD

REACTIONS (2)
  - COUGH [None]
  - BRONCHITIS [None]
